FAERS Safety Report 19745978 (Version 2)
Quarter: 2022Q2

REPORT INFORMATION
  Report Type: Spontaneous
  Country: US (occurrence: US)
  Receive Date: 20210825
  Receipt Date: 20220531
  Transmission Date: 20220721
  Serious: Yes (Other)
  Sender: FDA-Public Use
  Company Number: US-AMGEN-USASP2021128696

PATIENT

DRUGS (4)
  1. XGEVA [Suspect]
     Active Substance: DENOSUMAB
     Indication: Bone giant cell tumour
     Dosage: UNK, Q4WK
     Route: 065
  2. XGEVA [Suspect]
     Active Substance: DENOSUMAB
     Dosage: UNK, Q6WK
     Route: 065
  3. XGEVA [Suspect]
     Active Substance: DENOSUMAB
     Dosage: UNK, Q8WK
     Route: 065
  4. XGEVA [Suspect]
     Active Substance: DENOSUMAB
     Dosage: UNK, Q3MO
     Route: 065

REACTIONS (8)
  - Pathological fracture [Unknown]
  - Atypical fracture [Unknown]
  - Osteosarcoma [Unknown]
  - Bone giant cell tumour [Unknown]
  - Osteonecrosis of jaw [Unknown]
  - Off label use [Unknown]
  - Product dose omission issue [Unknown]
  - Impaired healing [Unknown]
